FAERS Safety Report 9806576 (Version 2)
Quarter: 2014Q2

REPORT INFORMATION
  Report Type: Report from Study
  Country: US (occurrence: US)
  Receive Date: 20140109
  Receipt Date: 20140521
  Transmission Date: 20141212
  Serious: Yes (Hospitalization)
  Sender: FDA-Public Use
  Company Number: US-ABBVIE-14P-163-1185720-00

PATIENT
  Age: 46 Year
  Sex: Female
  Weight: 73.09 kg

DRUGS (8)
  1. HUMIRA [Suspect]
     Indication: PSORIATIC ARTHROPATHY
     Route: 058
     Dates: start: 2007, end: 201303
  2. HUMIRA [Suspect]
     Route: 058
  3. CARVEDILOL [Concomitant]
     Indication: HYPERTENSION
  4. BUPROPION [Concomitant]
     Indication: DEPRESSION
  5. SERTRALINE [Concomitant]
     Indication: DEPRESSION
  6. HYDROCHLOROTHIAZIDE W/LOSARTAN [Concomitant]
     Indication: PRODUCT USED FOR UNKNOWN INDICATION
  7. TRAZODONE [Concomitant]
     Indication: PRODUCT USED FOR UNKNOWN INDICATION
  8. MULTIVITAMIN [Concomitant]
     Indication: PRODUCT USED FOR UNKNOWN INDICATION

REACTIONS (3)
  - Intracranial aneurysm [Unknown]
  - Headache [Recovered/Resolved]
  - Psoriasis [Not Recovered/Not Resolved]
